FAERS Safety Report 9985072 (Version 1)
Quarter: 2014Q1

REPORT INFORMATION
  Report Type: Report from Study
  Country: US (occurrence: US)
  Receive Date: 20140307
  Receipt Date: 20140307
  Transmission Date: 20141002
  Serious: No
  Sender: FDA-Public Use
  Company Number: US-ABBVIE-14P-163-1186645-00

PATIENT
  Age: 37 Year
  Sex: Female

DRUGS (5)
  1. HUMIRA [Suspect]
     Indication: COLITIS ULCERATIVE
     Dates: start: 201309
  2. LIALDA [Concomitant]
     Indication: COLITIS ULCERATIVE
  3. MERCAPTOPURINE [Concomitant]
     Indication: COLITIS ULCERATIVE
  4. LEXAPRO [Concomitant]
     Indication: DEPRESSION
  5. WELLBUTRIN [Concomitant]
     Indication: DEPRESSION

REACTIONS (1)
  - Injection site bruising [Recovering/Resolving]
